FAERS Safety Report 10956734 (Version 1)
Quarter: 2015Q1

REPORT INFORMATION
  Report Type: Spontaneous
  Country: US (occurrence: US)
  Receive Date: 20150326
  Receipt Date: 20150326
  Transmission Date: 20150721
  Serious: No
  Sender: FDA-Public Use
  Company Number: US-MYLANLABS-2014S1004424

PATIENT
  Age: 24 Year
  Sex: Female
  Weight: 122.47 kg

DRUGS (3)
  1. CLONAZEPAM. [Concomitant]
     Active Substance: CLONAZEPAM
     Indication: ANXIETY
     Dosage: UNK
  2. SELEGILINE [Suspect]
     Active Substance: SELEGILINE
     Indication: DEPRESSION
     Dosage: 12 MG,QD
     Route: 062
     Dates: start: 201311
  3. SAPHRIS [Concomitant]
     Active Substance: ASENAPINE MALEATE
     Indication: INSOMNIA
     Dosage: 5 MG,HS

REACTIONS (2)
  - Hypotension [Recovered/Resolved]
  - Dizziness [Recovered/Resolved]

NARRATIVE: CASE EVENT DATE: 201312
